FAERS Safety Report 6179065-5 (Version None)
Quarter: 2009Q2

REPORT INFORMATION
  Report Type: 
  Country: None (occurrence: None)
  Receive Date: 20090505
  Receipt Date: 20090424
  Transmission Date: 20091009
  Serious: Yes (Hospitalization)
  Sender: FDA-Public Use
  Company Number: PHHY2009JP15856

PATIENT

DRUGS (1)
  1. ZADITEN [Suspect]
     Dosage: UNK
     Route: 048
     Dates: start: 20090301

REACTIONS (1)
  - LIVER DISORDER [None]
